FAERS Safety Report 8020330-4 (Version None)
Quarter: 2012Q1

REPORT INFORMATION
  Report Type: 
  Country: None (occurrence: None)
  Receive Date: 20120103
  Receipt Date: 20111219
  Transmission Date: 20120608
  Serious: Yes (Hospitalization)
  Sender: FDA-Public Use
  Company Number: US-ARROW GEN-2011-22397

PATIENT
  Age: 20 Year
  Sex: Female

DRUGS (1)
  1. ALBUTEROL [Suspect]
     Indication: DYSPNOEA
     Dosage: TOTAL OF 5 ALBUTEROL NEBULIZATIONS (2.5 MG)
     Route: 050

REACTIONS (6)
  - PEAK EXPIRATORY FLOW RATE DECREASED [None]
  - LACTIC ACIDOSIS [None]
  - TACHYCARDIA [None]
  - INSPIRATORY CAPACITY DECREASED [None]
  - WHEEZING [None]
  - TACHYPNOEA [None]
